FAERS Safety Report 21338201 (Version 2)
Quarter: 2022Q4

REPORT INFORMATION
  Report Type: Spontaneous
  Country: CZ (occurrence: CZ)
  Receive Date: 20220915
  Receipt Date: 20221007
  Transmission Date: 20230113
  Serious: No
  Sender: FDA-Public Use
  Company Number: CZ-SA-SAC20220914000227

PATIENT
  Age: 72 Year
  Sex: Female

DRUGS (2)
  1. CABLIVI [Suspect]
     Active Substance: CAPLACIZUMAB-YHDP
     Indication: Thrombotic thrombocytopenic purpura
     Dosage: UNK
     Route: 058
     Dates: start: 20220524, end: 20220626
  2. NADROPARIN CALCIUM [Concomitant]
     Active Substance: NADROPARIN CALCIUM

REACTIONS (1)
  - Injection site haematoma [Recovered/Resolved]

NARRATIVE: CASE EVENT DATE: 20220530
